FAERS Safety Report 9071392 (Version 1)
Quarter: 2013Q1

REPORT INFORMATION
  Report Type: Spontaneous
  Country: PR (occurrence: PR)
  Receive Date: 20130129
  Receipt Date: 20130129
  Transmission Date: 20140127
  Serious: Yes (Hospitalization, Other)
  Sender: FDA-Public Use
  Company Number: PR-ABBOTT-12P-131-0903858-00

PATIENT
  Age: 63 None
  Sex: Female
  Weight: 86.26 kg

DRUGS (18)
  1. HUMIRA 40 MG/0.8 ML PEN [Suspect]
     Indication: RHEUMATOID ARTHRITIS
     Route: 058
     Dates: start: 201112, end: 20120210
  2. HUMIRA 40 MG/0.8 ML PEN [Suspect]
     Route: 058
     Dates: start: 20120317
  3. THROMBOCOLL [Concomitant]
     Indication: CEREBROVASCULAR ACCIDENT
     Route: 048
     Dates: start: 201201
  4. XARELTO [Concomitant]
     Indication: CEREBROVASCULAR ACCIDENT
     Route: 048
     Dates: start: 201201
  5. PLAVIX [Concomitant]
     Indication: CEREBROVASCULAR ACCIDENT
     Route: 048
     Dates: start: 2005, end: 201201
  6. LASIX [Concomitant]
     Indication: DIURETIC THERAPY
     Route: 048
     Dates: start: 2002
  7. CRESTOR [Concomitant]
     Indication: HYPERCHOLESTEROLAEMIA
     Route: 048
     Dates: start: 2011
  8. XETIA [Concomitant]
     Indication: HYPERTRIGLYCERIDAEMIA
     Route: 048
     Dates: start: 20120309
  9. PROTONIX [Concomitant]
     Indication: GASTRITIS
     Route: 048
     Dates: start: 2005
  10. DIGOXIN [Concomitant]
     Indication: CARDIAC DISORDER
     Route: 048
     Dates: start: 2007
  11. VITAMIN B12 [Concomitant]
     Indication: PRODUCT USED FOR UNKNOWN INDICATION
     Route: 048
     Dates: start: 2007
  12. NOVOLOG [Concomitant]
     Indication: DIABETES MELLITUS
     Dosage: WITH EACH MEAL
     Route: 058
     Dates: start: 2009
  13. LEVEMIL 65 U [Concomitant]
     Indication: DIABETES MELLITUS
     Dosage: 65 U AT HOUR OF SLEEP
     Route: 058
     Dates: start: 2009
  14. METFORMIN [Concomitant]
     Indication: DIABETES MELLITUS
     Dosage: 1000MG DAILY AS NEEDED
     Route: 048
     Dates: start: 2007
  15. JANUVIA [Concomitant]
     Indication: DIABETES MELLITUS
     Dosage: 100MG DAILY AS NEEDED
     Route: 048
     Dates: start: 2007
  16. PREDNISONE [Concomitant]
     Indication: PULMONARY FIBROSIS
     Route: 048
     Dates: start: 2007
  17. NEURONTIN [Concomitant]
     Indication: PRODUCT USED FOR UNKNOWN INDICATION
     Route: 048
     Dates: start: 2007
  18. CARAFATE [Concomitant]
     Indication: HIATUS HERNIA

REACTIONS (2)
  - Fall [Unknown]
  - Syncope [Recovered/Resolved]
